FAERS Safety Report 8580490-3 (Version None)
Quarter: 2012Q3

REPORT INFORMATION
  Report Type: 
  Country: None (occurrence: None)
  Receive Date: 20120808
  Receipt Date: 20120806
  Transmission Date: 20120928
  Serious: Yes (Death)
  Sender: FDA-Public Use
  Company Number: US-ABBOTT-12P-163-0942219-00

PATIENT
  Sex: Male
  Weight: 69.462 kg

DRUGS (4)
  1. METOPROLOL TARTRATE [Concomitant]
     Indication: CARDIAC DISORDER
  2. UNKNOWN BETA BLOCKERS [Concomitant]
     Indication: CARDIAC DISORDER
     Route: 048
  3. SEVERAL OTHER MEDICATIONS [Concomitant]
     Indication: PRODUCT USED FOR UNKNOWN INDICATION
  4. ZEMPLAR [Suspect]
     Indication: RENAL DISORDER
     Route: 048
     Dates: start: 20120101, end: 20120101

REACTIONS (2)
  - MYOCARDIAL INFARCTION [None]
  - CHEST PAIN [None]
